FAERS Safety Report 4639718-4 (Version None)
Quarter: 2005Q2

REPORT INFORMATION
  Report Type: 
  Country: None (occurrence: None)
  Receive Date: 20050328
  Receipt Date: 20041227
  Transmission Date: 20051028
  Serious: No
  Sender: FDA-Public Use
  Company Number: USA041286978

PATIENT
  Age: 345 Week
  Sex: Male
  Weight: 24 kg

DRUGS (4)
  1. STRATTERA [Suspect]
     Indication: ATTENTION DEFICIT/HYPERACTIVITY DISORDER
     Dosage: 25 MG DAY
     Dates: start: 20041104
  2. ZANTAC [Concomitant]
  3. AMOXICILLIN [Concomitant]
  4. AUGMENTIN '125' [Concomitant]

REACTIONS (5)
  - ABDOMINAL PAIN [None]
  - EAR INFECTION [None]
  - FATIGUE [None]
  - RETCHING [None]
  - VOMITING [None]
